FAERS Safety Report 13842038 (Version 1)
Quarter: 2017Q3

REPORT INFORMATION
  Report Type: Report from Study
  Country: US (occurrence: US)
  Receive Date: 20170807
  Receipt Date: 20170807
  Transmission Date: 20171127
  Serious: No
  Sender: FDA-Public Use
  Company Number: US-AMGEN-USASL2017036977

PATIENT
  Age: 48 Year
  Sex: Female
  Weight: 73.2 kg

DRUGS (3)
  1. NPLATE [Suspect]
     Active Substance: ROMIPLOSTIM
     Dosage: 5 UNK
     Route: 065
  2. NPLATE [Suspect]
     Active Substance: ROMIPLOSTIM
     Indication: IMMUNE THROMBOCYTOPENIC PURPURA
     Dosage: 365 MUG, QWK
     Route: 030
     Dates: start: 20151007
  3. NPLATE [Suspect]
     Active Substance: ROMIPLOSTIM
     Dosage: 4.5 UNK, QWK
     Route: 030
     Dates: start: 20151007

REACTIONS (11)
  - Energy increased [Recovered/Resolved]
  - Drug hypersensitivity [Unknown]
  - Localised infection [Unknown]
  - Limb injury [Unknown]
  - Pyrexia [Recovered/Resolved]
  - Pain [Recovered/Resolved]
  - Platelet count abnormal [Unknown]
  - Platelet count decreased [Unknown]
  - Fatigue [Recovered/Resolved]
  - Contusion [Recovering/Resolving]
  - Flushing [Recovered/Resolved]

NARRATIVE: CASE EVENT DATE: 20170306
